FAERS Safety Report 11982161 (Version 1)
Quarter: 2016Q1

REPORT INFORMATION
  Report Type: Spontaneous
  Country: US (occurrence: None)
  Receive Date: 20160129
  Receipt Date: 20160129
  Transmission Date: 20160526
  Serious: No
  Sender: FDA-Public Use
  Company Number: None

PATIENT
  Age: 57 Year
  Sex: Female
  Weight: 56.7 kg

DRUGS (2)
  1. PREDNISOLONE ACETATE. [Suspect]
     Active Substance: PREDNISOLONE ACETATE
     Indication: IRITIS
     Dosage: 10 ML, 1 DROP, EVERY 4 HOURS, EYE DROP
     Dates: start: 20151211, end: 20151214
  2. TYLENOL [Concomitant]
     Active Substance: ACETAMINOPHEN

REACTIONS (5)
  - Vertigo [None]
  - Gait disturbance [None]
  - Joint stiffness [None]
  - Muscular weakness [None]
  - Paraesthesia [None]

NARRATIVE: CASE EVENT DATE: 20151213
